FAERS Safety Report 6730432-8 (Version None)
Quarter: 2010Q2

REPORT INFORMATION
  Report Type: 
  Country: None (occurrence: None)
  Receive Date: 20100518
  Receipt Date: 20100511
  Transmission Date: 20101027
  Serious: Yes (Life-Threatening)
  Sender: FDA-Public Use
  Company Number: B0652209A

PATIENT
  Age: 74 Year
  Sex: Female

DRUGS (3)
  1. CHLORAMBUCIL [Suspect]
     Route: 048
     Dates: start: 20100113, end: 20100119
  2. ACYCLOVIR SODIUM [Concomitant]
     Indication: PROPHYLAXIS
     Dosage: 1200MG PER DAY
     Route: 048
     Dates: start: 20100113
  3. ALLOPURINOL [Concomitant]
     Indication: PROPHYLAXIS
     Dosage: 300MG PER DAY
     Route: 048
     Dates: start: 20100113

REACTIONS (2)
  - HYPONATRAEMIA [None]
  - INAPPROPRIATE ANTIDIURETIC HORMONE SECRETION [None]
